FAERS Safety Report 24141737 (Version 1)
Quarter: 2024Q3

REPORT INFORMATION
  Report Type: Spontaneous
  Country: US (occurrence: None)
  Receive Date: 20240726
  Receipt Date: 20240726
  Transmission Date: 20241016
  Serious: Yes (unspecified)
  Sender: Public
  Company Number: None

PATIENT
  Age: 46 Year
  Weight: 76.5 kg

DRUGS (1)
  1. CLONIDINE [Suspect]
     Active Substance: CLONIDINE
     Indication: Hypertension

REACTIONS (6)
  - Drug dependence [None]
  - Heart rate irregular [None]
  - Therapy interrupted [None]
  - Anxiety [None]
  - Asthenia [None]
  - Brain fog [None]

NARRATIVE: CASE EVENT DATE: 20230824
